FAERS Safety Report 4874929-4 (Version None)
Quarter: 2006Q1

REPORT INFORMATION
  Report Type: 
  Country: None (occurrence: None)
  Receive Date: 20060105
  Receipt Date: 20051228
  Transmission Date: 20060701
  Serious: Yes (Other)
  Sender: FDA-Public Use
  Company Number: 2005-04955

PATIENT
  Age: 51 Year
  Sex: Female
  Weight: 70.3 kg

DRUGS (1)
  1. NORCO [Suspect]
     Indication: SHOULDER PAIN
     Dosage: 4 PER DAY, THEN 3, THEN 2, ORAL
     Route: 048
     Dates: start: 20050509, end: 20051101

REACTIONS (8)
  - BLEPHARITIS [None]
  - EXOPHTHALMOS [None]
  - EYE DISCHARGE [None]
  - EYE DISORDER [None]
  - EYE IRRITATION [None]
  - HEADACHE [None]
  - ULCERATIVE KERATITIS [None]
  - VISION BLURRED [None]
